FAERS Safety Report 7273584-6 (Version None)
Quarter: 2011Q1

REPORT INFORMATION
  Report Type: 
  Country: None (occurrence: None)
  Receive Date: 20110203
  Receipt Date: 20100926
  Transmission Date: 20110831
  Serious: No
  Sender: FDA-Public Use
  Company Number: US-ABBOTT-10P-163-0674526-00

PATIENT
  Sex: Female
  Weight: 56.296 kg

DRUGS (2)
  1. SYNTHROID [Suspect]
     Dates: start: 20030101
  2. SYNTHROID [Suspect]
     Indication: HYPOTHYROIDISM
     Dates: start: 19980101, end: 19990101

REACTIONS (5)
  - COELIAC DISEASE [None]
  - ABDOMINAL PAIN UPPER [None]
  - STEATORRHOEA [None]
  - VOMITING [None]
  - ABDOMINAL DISTENSION [None]
